FAERS Safety Report 7825235-7 (Version None)
Quarter: 2011Q4

REPORT INFORMATION
  Report Type: 
  Country: None (occurrence: None)
  Receive Date: 20111019
  Receipt Date: 20111012
  Transmission Date: 20120403
  Serious: Yes (Hospitalization)
  Sender: FDA-Public Use
  Company Number: US-GLAXOSMITHKLINE-A0845031A

PATIENT
  Age: 54 Year
  Sex: Female
  Weight: 138.6 kg

DRUGS (1)
  1. AVANDIA [Suspect]
     Indication: DIABETES MELLITUS
     Dosage: 8MG PER DAY
     Route: 048
     Dates: start: 20010201, end: 20041117

REACTIONS (5)
  - CARDIOVASCULAR DISORDER [None]
  - WEIGHT INCREASED [None]
  - CARDIAC FAILURE CONGESTIVE [None]
  - RETINAL ARTERY EMBOLISM [None]
  - FLUID RETENTION [None]
